FAERS Safety Report 4283840-1 (Version None)
Quarter: 2004Q1

REPORT INFORMATION
  Report Type: 
  Country: None (occurrence: None)
  Receive Date: 20040130
  Receipt Date: 20040122
  Transmission Date: 20041129
  Serious: Yes (Other)
  Sender: FDA-Public Use
  Company Number: HQWYE528722JAN04

PATIENT

DRUGS (1)
  1. PROTIUM (PANTOPRAZOLE, TABLET, DELAYED RELEASE) [Suspect]
     Indication: GASTROINTESTINAL DISORDER
     Dosage: UNKNOWN; ORAL
     Route: 048
     Dates: start: 20031219, end: 20031222

REACTIONS (3)
  - ABDOMINAL PAIN [None]
  - DIARRHOEA NEONATAL [None]
  - DRUG EXPOSURE VIA BREAST MILK [None]
